FAERS Safety Report 21404681 (Version 1)
Quarter: 2022Q4

REPORT INFORMATION
  Report Type: Spontaneous
  Country: US (occurrence: US)
  Receive Date: 20221003
  Receipt Date: 20221003
  Transmission Date: 20230112
  Serious: Yes (Other)
  Sender: FDA-Public Use
  Company Number: US-BEH-2022150143

PATIENT
  Age: 39 Year
  Sex: Female
  Weight: 76.19 kg

DRUGS (1)
  1. HIZENTRA [Suspect]
     Active Substance: HUMAN IMMUNOGLOBULIN G
     Indication: Immunodeficiency common variable
     Dosage: 4 GRAM, QD
     Route: 058
     Dates: start: 202111

REACTIONS (2)
  - Gallbladder operation [Unknown]
  - Weight decreased [Unknown]

NARRATIVE: CASE EVENT DATE: 20220825
